FAERS Safety Report 21191745 (Version 3)
Quarter: 2022Q4

REPORT INFORMATION
  Report Type: Spontaneous
  Country: US (occurrence: US)
  Receive Date: 20220809
  Receipt Date: 20221117
  Transmission Date: 20230113
  Serious: Yes (Hospitalization, Other)
  Sender: FDA-Public Use
  Company Number: US-BRISTOL-MYERS SQUIBB COMPANY-2022-085885

PATIENT
  Age: 70 Year
  Sex: Female

DRUGS (2)
  1. POMALYST [Suspect]
     Active Substance: POMALIDOMIDE
     Indication: Plasma cell myeloma
     Dosage: 2 MG DAILY
     Route: 048
     Dates: start: 20220228
  2. POMALYST [Suspect]
     Active Substance: POMALIDOMIDE
     Dosage: 2 MG DAILY
     Route: 048
     Dates: start: 20220128

REACTIONS (2)
  - Respiratory syncytial virus infection [Unknown]
  - Pneumonia [Unknown]

NARRATIVE: CASE EVENT DATE: 20220629
